FAERS Safety Report 8474250-1 (Version None)
Quarter: 2012Q2

REPORT INFORMATION
  Report Type: 
  Country: None (occurrence: None)
  Receive Date: 20120628
  Receipt Date: 20120618
  Transmission Date: 20120825
  Serious: Yes (Death, Hospitalization)
  Sender: FDA-Public Use
  Company Number: KR-MILLENNIUM PHARMACEUTICALS, INC.-2012-02350

PATIENT

DRUGS (7)
  1. MUCOPECT [Concomitant]
     Indication: PROPHYLAXIS
     Dosage: 15 MG, UNK
     Route: 042
     Dates: start: 20120401, end: 20120404
  2. MELPHALAN HYDROCHLORIDE [Suspect]
     Indication: MULTIPLE MYELOMA
     Dosage: 5.2 MG/M2, UNK
     Route: 048
     Dates: start: 20120315, end: 20120318
  3. CLAFORAN [Concomitant]
     Indication: DIARRHOEA
     Dosage: 2000 MG, UNK
     Route: 042
     Dates: start: 20120401, end: 20120404
  4. FLAGYL [Concomitant]
     Indication: DIARRHOEA
     Dosage: 500 MG, UNK
     Route: 042
     Dates: start: 20120401, end: 20120404
  5. VELCADE [Suspect]
     Indication: MULTIPLE MYELOMA
     Dosage: 1.3 MG/M2, UNK
     Route: 042
     Dates: start: 20120315, end: 20120325
  6. PREDNISOLONE [Suspect]
     Indication: MULTIPLE MYELOMA
     Dosage: 60 MG/M2, UNK
     Route: 048
     Dates: start: 20120315, end: 20120318
  7. GASTER                             /00706001/ [Concomitant]
     Indication: PROPHYLAXIS
     Dosage: 20 MG, UNK
     Route: 042
     Dates: start: 20120401, end: 20120404

REACTIONS (2)
  - DEATH [None]
  - ENTEROCOLITIS INFECTIOUS [None]
